FAERS Safety Report 23196779 (Version 1)
Quarter: 2023Q4

REPORT INFORMATION
  Report Type: Spontaneous
  Country: US (occurrence: None)
  Receive Date: 20231117
  Receipt Date: 20231117
  Transmission Date: 20240109
  Serious: No
  Sender: FDA-Public Use
  Company Number: None

PATIENT
  Age: 36 Year
  Sex: Female

DRUGS (1)
  1. BENLYSTA [Suspect]
     Active Substance: BELIMUMAB
     Indication: Systemic lupus erythematosus
     Dosage: FREQUENCY : WEEKLY;?
     Route: 058
     Dates: start: 202307, end: 20230711

REACTIONS (6)
  - Therapy interrupted [None]
  - Dyspnoea [None]
  - Palpitations [None]
  - Balance disorder [None]
  - Wheezing [None]
  - Coordination abnormal [None]

NARRATIVE: CASE EVENT DATE: 20231111
